FAERS Safety Report 7185877-1 (Version None)
Quarter: 2010Q4

REPORT INFORMATION
  Report Type: 
  Country: None (occurrence: None)
  Receive Date: 20101123
  Receipt Date: 20100809
  Transmission Date: 20110411
  Serious: No
  Sender: FDA-Public Use
  Company Number: 016995

PATIENT
  Sex: Female
  Weight: 52.6 kg

DRUGS (9)
  1. CIMZIA [Suspect]
     Indication: CROHN'S DISEASE
     Dosage: (TWO SHOTS SUBCUTANEOUS)
     Route: 058
     Dates: start: 20100101, end: 20100608
  2. PREDNISONE [Concomitant]
  3. LYRICA [Concomitant]
  4. DROSPIRENONE AND ETHINYL ESTRADIOL [Concomitant]
  5. CYMBALTA [Concomitant]
  6. ZYRTEC [Concomitant]
  7. VALTREX [Concomitant]
  8. MULTIVITAMIN /01229101/ [Concomitant]
  9. METHOTREXATE [Concomitant]

REACTIONS (2)
  - CROHN'S DISEASE [None]
  - WEIGHT DECREASED [None]
